FAERS Safety Report 10550923 (Version 1)
Quarter: 2014Q4

REPORT INFORMATION
  Report Type: Spontaneous
  Country: US (occurrence: None)
  Receive Date: 20141020
  Receipt Date: 20141020
  Transmission Date: 20150529
  Serious: No
  Sender: FDA-Public Use
  Company Number: AEGR000614

PATIENT
  Age: 55 Year
  Sex: Female
  Weight: 53.1 kg

DRUGS (14)
  1. NITROGLYCERIN (GLYCERYL TRINITRATE) [Concomitant]
  2. GLIMEPIRIDE (GLIMEPIRIDE) [Concomitant]
     Active Substance: GLIMEPIRIDE
  3. ZETIA [Concomitant]
     Active Substance: EZETIMIBE
  4. CILOSTAZOL (CILOSTAZOL) [Concomitant]
  5. CRESTOR [Concomitant]
     Active Substance: ROSUVASTATIN CALCIUM
  6. PLAVIX [Concomitant]
     Active Substance: CLOPIDOGREL BISULFATE
  7. GABAPENTIN (GABAPENTIN) [Concomitant]
     Active Substance: GABAPENTIN
  8. HYDROCHLOROTHIAZIDE (HYDROCHLOROTHIAZIDE) [Concomitant]
     Active Substance: HYDROCHLOROTHIAZIDE
  9. OMEGA 3 6 9 (OMEGA 9 FATTY ACIDS, OMEGA-3 FATTY ACIDS, OMEGA-6 FATTY ACIDS) [Concomitant]
  10. COREG [Concomitant]
     Active Substance: CARVEDILOL
  11. JUXTAPID [Suspect]
     Active Substance: LOMITAPIDE MESYLATE
     Indication: TYPE IIA HYPERLIPIDAEMIA
     Route: 048
     Dates: start: 20140627, end: 20140711
  12. METFORMIN HCL (METFORMIN HYDROCHLORIDE) [Concomitant]
  13. VITAMIN E (TOCOPHERYL ACETATE) [Concomitant]
  14. ASPIRIN. [Concomitant]
     Active Substance: ASPIRIN

REACTIONS (1)
  - Diarrhoea [None]

NARRATIVE: CASE EVENT DATE: 20140627
